FAERS Safety Report 13332346 (Version 1)
Quarter: 2017Q1

REPORT INFORMATION
  Report Type: Report from Study
  Country: CN (occurrence: CN)
  Receive Date: 20170314
  Receipt Date: 20170314
  Transmission Date: 20170428
  Serious: Yes (Other)
  Sender: FDA-Public Use
  Company Number: PHHY2015CN170041

PATIENT
  Age: 37 Year
  Sex: Male

DRUGS (162)
  1. BASILIXIMAB [Suspect]
     Active Substance: BASILIXIMAB
     Dosage: 20 MG, QD
     Route: 065
     Dates: start: 20151208, end: 20151208
  2. METHYLPREDNISOLONE. [Suspect]
     Active Substance: METHYLPREDNISOLONE
     Dosage: 660 MG, QD
     Route: 065
     Dates: start: 20151205, end: 20151205
  3. MANNITOL. [Concomitant]
     Active Substance: MANNITOL
     Dosage: 125 ML, SOS
     Route: 042
     Dates: start: 20151103, end: 20151103
  4. MAGNESIN//MAGNESIUM SULFATE [Concomitant]
     Dosage: 3.2 ML, PRN
     Route: 042
     Dates: start: 20151204, end: 20151204
  5. MAGNESIN//MAGNESIUM SULFATE [Concomitant]
     Dosage: 1.6 ML, PRN
     Route: 042
     Dates: start: 20151205, end: 20151205
  6. SODIUM BICARBONATE. [Concomitant]
     Active Substance: SODIUM BICARBONATE
     Indication: URINE ALKALINISATION THERAPY
     Dosage: 250 ML, QD
     Route: 042
     Dates: start: 20151103, end: 20151104
  7. FUROSEMIDE. [Concomitant]
     Active Substance: FUROSEMIDE
     Dosage: 80 MG, QD
     Route: 042
     Dates: start: 20151014, end: 20151014
  8. FUROSEMIDE. [Concomitant]
     Active Substance: FUROSEMIDE
     Dosage: 80 MG, QD
     Route: 042
     Dates: start: 20151103, end: 20151103
  9. TALCID [Concomitant]
     Active Substance: HYDROTALCITE
     Indication: PROPHYLAXIS
     Dosage: 1000 MG, QD
     Route: 048
     Dates: start: 20151015
  10. TEICOPLANIN [Concomitant]
     Active Substance: TEICOPLANIN
     Dosage: 200 MG, QD
     Route: 042
     Dates: start: 20151014
  11. DIAZEPAM. [Concomitant]
     Active Substance: DIAZEPAM
     Dosage: 5 MG, QD
     Route: 048
     Dates: start: 20151103, end: 20151103
  12. HEPARIN SODIUM. [Concomitant]
     Active Substance: HEPARIN SODIUM
     Indication: ANTICOAGULANT THERAPY
     Dosage: 12500 IU, W2D4
     Route: 042
     Dates: start: 20151016
  13. LOSEC                                   /CAN/ [Concomitant]
     Indication: ANTACID THERAPY
     Dosage: 40 MG, QD
     Route: 048
     Dates: start: 20151015
  14. LEVOFLOXACIN. [Concomitant]
     Active Substance: LEVOFLOXACIN
     Indication: INFECTION PROPHYLAXIS
     Dosage: 500 MG, QD
     Route: 042
     Dates: start: 20151107
  15. SODIUM PHOSPHATE [Concomitant]
     Active Substance: SODIUM PHOSPHATE
     Indication: GASTRIC LAVAGE
     Dosage: 133 ML, PRN
     Route: 042
     Dates: start: 20151204, end: 20151204
  16. MYFORTIC [Suspect]
     Active Substance: MYCOPHENOLATE SODIUM
     Indication: DELAYED GRAFT FUNCTION
     Dosage: 1080 MG, QD
     Route: 065
     Dates: start: 20151210, end: 20160111
  17. MYFORTIC [Suspect]
     Active Substance: MYCOPHENOLATE SODIUM
     Dosage: 720 MG, QD
     Route: 065
     Dates: start: 20160112
  18. BASILIXIMAB [Suspect]
     Active Substance: BASILIXIMAB
     Indication: RENAL TRANSPLANT
     Dosage: 20 MG, QD
     Route: 065
     Dates: start: 20151204, end: 20151204
  19. TACROLIMUS. [Suspect]
     Active Substance: TACROLIMUS
     Dosage: 6 MG, QD
     Route: 065
     Dates: start: 20151208, end: 20151217
  20. TACROLIMUS. [Suspect]
     Active Substance: TACROLIMUS
     Dosage: 5 MG, QD
     Route: 065
     Dates: start: 20151218, end: 20151221
  21. AARAM//ALPRAZOLAM [Concomitant]
     Dosage: 0.4 MG, QD
     Route: 048
     Dates: start: 20151015
  22. AARAM//ALPRAZOLAM [Concomitant]
     Dosage: 0.4 MG, QN
     Route: 048
     Dates: start: 20151205, end: 20151219
  23. FUROSEMIDE. [Concomitant]
     Active Substance: FUROSEMIDE
     Indication: PROPHYLAXIS
     Dosage: 40 MG, QD
     Route: 042
     Dates: start: 20150906, end: 20150906
  24. FUROSEMIDE. [Concomitant]
     Active Substance: FUROSEMIDE
     Dosage: 40 MG, QD
     Route: 042
     Dates: start: 20151018, end: 20151019
  25. DIAZEPAM. [Concomitant]
     Active Substance: DIAZEPAM
     Indication: SEDATION
     Dosage: 5 MG, QD
     Route: 048
     Dates: start: 20151014, end: 20151014
  26. HEPARIN SODIUM. [Concomitant]
     Active Substance: HEPARIN SODIUM
     Dosage: 12500 IU, W2D6
     Route: 042
     Dates: start: 20151206, end: 20151207
  27. SUCRALFATE. [Concomitant]
     Active Substance: SUCRALFATE
     Indication: PROPHYLAXIS
     Dosage: 750 MG, QD
     Route: 048
     Dates: start: 20151014, end: 20151014
  28. CALCIUM GLUCONATE. [Concomitant]
     Active Substance: CALCIUM GLUCONATE
     Indication: NUTRITIONAL SUPPLEMENTATION
     Dosage: 3000 MG, QD
     Route: 042
     Dates: start: 20151015, end: 20151016
  29. IMIPENEM/CILASTATINE [Concomitant]
     Active Substance: CILASTATIN SODIUM\IMIPENEM
     Dosage: 500 MG, Q8H
     Route: 042
     Dates: start: 20151205, end: 20151213
  30. HEPATITIS B IMMUNE GLOBULIN [Concomitant]
     Active Substance: HUMAN HEPATITIS B VIRUS IMMUNE GLOBULIN
     Dosage: 400 IU, QD
     Route: 030
     Dates: start: 20151104, end: 20151104
  31. INSULIN [Concomitant]
     Active Substance: INSULIN NOS
     Dosage: 18 IU, QD
     Route: 042
     Dates: start: 20151106, end: 20151106
  32. INSULIN [Concomitant]
     Active Substance: INSULIN NOS
     Dosage: 12 IU, QD
     Route: 042
     Dates: start: 20151204, end: 20151205
  33. CEFOPERAZONE W/SULBACTAM SODIUM [Concomitant]
     Dosage: 2 G, Q8H
     Route: 042
     Dates: start: 20151107
  34. FELODIPINE. [Concomitant]
     Active Substance: FELODIPINE
     Indication: BLOOD PRESSURE INCREASED
     Dosage: 5 MG, QD
     Route: 048
     Dates: start: 20151110
  35. COMPOUND SODIUM CHLORIDE           /06440701/ [Concomitant]
     Indication: FLUID REPLACEMENT
     Dosage: 500 MG, QD
     Route: 042
     Dates: start: 20151103
  36. MOSAPRIDE CITRATE [Concomitant]
     Active Substance: MOSAPRIDE CITRATE
     Indication: ABDOMINAL DISCOMFORT
  37. MANNITOL. [Concomitant]
     Active Substance: MANNITOL
     Indication: PROPHYLAXIS
     Dosage: 125 ML, SOS
     Route: 042
     Dates: start: 20150901, end: 20150901
  38. MAGNESIN//MAGNESIUM SULFATE [Concomitant]
     Indication: PROPHYLAXIS
     Dosage: 3.2 ML, QD
     Route: 042
     Dates: start: 20150901, end: 20150902
  39. AMIKACIN [Concomitant]
     Active Substance: AMIKACIN
     Indication: INFECTION PROPHYLAXIS
     Dosage: 400 MG, QD
     Route: 030
     Dates: start: 20151014, end: 20151014
  40. PMS-PROMETHAZINE [Concomitant]
     Dosage: 2 DF, TID
     Route: 048
     Dates: start: 20151015
  41. DILTIAZEM HYDROCHLORIDE. [Concomitant]
     Active Substance: DILTIAZEM HYDROCHLORIDE
     Indication: BLOOD PRESSURE INCREASED
     Dosage: 30 MG, BID
     Route: 048
     Dates: start: 20150902
  42. DILTIAZEM HYDROCHLORIDE. [Concomitant]
     Active Substance: DILTIAZEM HYDROCHLORIDE
     Dosage: 30 MG, BID
     Route: 048
     Dates: start: 20151205
  43. FUROSEMIDE. [Concomitant]
     Active Substance: FUROSEMIDE
     Indication: DIURETIC THERAPY
     Dosage: 80 MG, SOS
     Route: 042
     Dates: start: 20150901, end: 20150901
  44. FUROSEMIDE. [Concomitant]
     Active Substance: FUROSEMIDE
     Dosage: 40 MG, QD
     Route: 042
     Dates: start: 20151206, end: 20151209
  45. FUROSEMIDE. [Concomitant]
     Active Substance: FUROSEMIDE
     Dosage: 80 MG, PRN
     Route: 042
     Dates: start: 20151204, end: 20151204
  46. DIAZEPAM. [Concomitant]
     Active Substance: DIAZEPAM
     Indication: PROPHYLAXIS
     Dosage: 5 MG, SOS
     Route: 048
     Dates: start: 20150901, end: 20150901
  47. HEPARIN SODIUM. [Concomitant]
     Active Substance: HEPARIN SODIUM
     Dosage: 12500 IU, W1D3
     Route: 042
     Dates: start: 20151207, end: 20151219
  48. SUCRALFATE. [Concomitant]
     Active Substance: SUCRALFATE
     Dosage: 750 MG, UNK
     Route: 048
     Dates: start: 20151204, end: 20151204
  49. CALCIUM GLUCONATE. [Concomitant]
     Active Substance: CALCIUM GLUCONATE
     Dosage: 3 G, QD
     Route: 042
     Dates: start: 20151205, end: 20151206
  50. IMIPENEM/CILASTATINE [Concomitant]
     Active Substance: CILASTATIN SODIUM\IMIPENEM
     Dosage: 500 MG, Q8H
     Route: 042
     Dates: start: 20151103, end: 20151107
  51. IMIPENEM/CILASTATINE [Concomitant]
     Active Substance: CILASTATIN SODIUM\IMIPENEM
     Dosage: 500 MG, BID
     Route: 042
     Dates: end: 20151219
  52. HEPATITIS B IMMUNE GLOBULIN [Concomitant]
     Active Substance: HUMAN HEPATITIS B VIRUS IMMUNE GLOBULIN
     Dosage: 400 IU, QD
     Route: 030
     Dates: start: 20151205, end: 20151205
  53. INSULIN [Concomitant]
     Active Substance: INSULIN NOS
     Dosage: 12 IU, QD
     Route: 042
     Dates: start: 20151103, end: 20151104
  54. POTASSIUM CHLORIDE. [Concomitant]
     Active Substance: POTASSIUM CHLORIDE
     Dosage: 6 ML, PRN
     Route: 042
     Dates: start: 20151205, end: 20151205
  55. MUCOSOLVAN [Concomitant]
     Active Substance: AMBROXOL HYDROCHLORIDE
     Indication: SPUTUM RETENTION
     Dosage: 30 MG, TID
     Route: 048
     Dates: start: 20151105
  56. GLUCOSE [Concomitant]
     Active Substance: DEXTROSE
     Indication: HAEMODIALYSIS
     Dosage: 20 G, QD
     Route: 042
     Dates: start: 20151210, end: 20151210
  57. GLUCOSE [Concomitant]
     Active Substance: DEXTROSE
     Dosage: 1000 ML, QD
     Route: 042
     Dates: start: 20151205, end: 20151205
  58. ENEMA (SODIUM PHOSPHATE, DIBASIC\SODIUM PHOSPHATE, MONOBASIC) [Concomitant]
     Active Substance: SODIUM PHOSPHATE, DIBASIC\SODIUM PHOSPHATE, MONOBASIC
     Indication: CONSTIPATION PROPHYLAXIS
     Dosage: 40 ML, PRN
     Route: 054
     Dates: start: 20151217, end: 20151217
  59. TACROLIMUS. [Suspect]
     Active Substance: TACROLIMUS
     Indication: RENAL TRANSPLANT
     Dosage: 7 MG, QD
     Route: 065
     Dates: start: 20151205, end: 20151207
  60. TACROLIMUS. [Suspect]
     Active Substance: TACROLIMUS
     Dosage: 2 MG, QD
     Route: 065
     Dates: start: 20151229, end: 20160111
  61. PREDNISONE. [Suspect]
     Active Substance: PREDNISONE
     Dosage: 15 MG, QD
     Route: 065
     Dates: start: 20151222, end: 20160111
  62. MANNITOL. [Concomitant]
     Active Substance: MANNITOL
     Dosage: 125 ML, UNK
     Route: 042
     Dates: start: 20151204, end: 20151204
  63. SODIUM BICARBONATE. [Concomitant]
     Active Substance: SODIUM BICARBONATE
     Indication: PROPHYLAXIS
     Dosage: 1000 MG, PRN
     Route: 048
     Dates: start: 20151219
  64. AMIKACIN [Concomitant]
     Active Substance: AMIKACIN
     Indication: PROPHYLAXIS
     Dosage: 400 MG, QD
     Route: 042
     Dates: start: 20150901, end: 20150901
  65. PMS-PROMETHAZINE [Concomitant]
     Dosage: 2 DF, TID
     Route: 048
     Dates: start: 20151104
  66. DILTIAZEM HYDROCHLORIDE. [Concomitant]
     Active Substance: DILTIAZEM HYDROCHLORIDE
     Dosage: 30 MG, BID
     Route: 048
     Dates: start: 20151015
  67. METOCLOPRAMIDE. [Concomitant]
     Active Substance: METOCLOPRAMIDE
     Indication: ANTIEMETIC SUPPORTIVE CARE
     Dosage: 10 MG, QD
     Route: 030
     Dates: start: 20150903, end: 20150903
  68. CASPOFUNGIN ACETATE. [Concomitant]
     Active Substance: CASPOFUNGIN ACETATE
     Indication: INFECTION PROPHYLAXIS
     Dosage: 50 MG, QD
     Route: 042
     Dates: start: 20150901, end: 20150908
  69. CASPOFUNGIN ACETATE. [Concomitant]
     Active Substance: CASPOFUNGIN ACETATE
     Dosage: 50 MG, QD
     Route: 042
     Dates: start: 20151103, end: 20151114
  70. CASPOFUNGIN ACETATE. [Concomitant]
     Active Substance: CASPOFUNGIN ACETATE
     Dosage: 50 MG, QD
     Route: 042
     Dates: start: 20151205, end: 20151213
  71. SUCRALFATE. [Concomitant]
     Active Substance: SUCRALFATE
     Dosage: 750 MG, QD
     Route: 048
     Dates: start: 20151103, end: 20151103
  72. ALIN//DEXAMETHASONE [Concomitant]
     Dosage: 10 MG, SOS
     Route: 042
     Dates: start: 20151103, end: 20151103
  73. ALIN//DEXAMETHASONE [Concomitant]
     Dosage: 10 MG, QD
     Route: 042
     Dates: start: 20151204, end: 20151204
  74. POTASSIUM CHLORIDE. [Concomitant]
     Active Substance: POTASSIUM CHLORIDE
     Dosage: 12 ML, PRN
     Route: 042
     Dates: start: 20151204, end: 20151205
  75. NIFEDIPINE. [Concomitant]
     Active Substance: NIFEDIPINE
     Indication: BLOOD PRESSURE INCREASED
     Dosage: 10 MG, QD
     Route: 048
     Dates: start: 20151108, end: 20151110
  76. NIFEDIPINE. [Concomitant]
     Active Substance: NIFEDIPINE
     Dosage: 10 MG, QD
     Route: 048
     Dates: start: 20151112, end: 20151115
  77. TACROLIMUS. [Suspect]
     Active Substance: TACROLIMUS
     Dosage: 3 MG, QD
     Route: 065
     Dates: start: 20160112
  78. METHYLPREDNISOLONE. [Suspect]
     Active Substance: METHYLPREDNISOLONE
     Indication: RENAL TRANSPLANT
     Dosage: 780 MG, QD
     Route: 065
     Dates: start: 20151204, end: 20151204
  79. PREDNISONE. [Suspect]
     Active Substance: PREDNISONE
     Indication: IMMUNOSUPPRESSANT DRUG THERAPY
     Dosage: 20 MG, QD
     Route: 065
     Dates: start: 20151219, end: 20151221
  80. MAGNESIN//MAGNESIUM SULFATE [Concomitant]
     Dosage: 3.2 ML, QD
     Route: 042
     Dates: start: 20151103, end: 20151104
  81. SODIUM BICARBONATE. [Concomitant]
     Active Substance: SODIUM BICARBONATE
     Dosage: 250 ML, PRN
     Route: 042
     Dates: start: 20151204, end: 20151204
  82. SODIUM BICARBONATE. [Concomitant]
     Active Substance: SODIUM BICARBONATE
     Indication: URINE ALKALINISATION THERAPY
  83. SULFAMETHOXAZOLE [Concomitant]
     Active Substance: SULFAMETHOXAZOLE
     Dosage: 240 MG, PRN
     Route: 048
     Dates: start: 20151219
  84. FUROSEMIDE. [Concomitant]
     Active Substance: FUROSEMIDE
     Dosage: 20 MG, QD
     Route: 042
     Dates: start: 20151015, end: 20151015
  85. GANCICLOVIR. [Concomitant]
     Active Substance: GANCICLOVIR
     Indication: INFECTION PROPHYLAXIS
     Dosage: 500 MG, TID
     Route: 048
     Dates: start: 20150909
  86. OMEPRAZOLE. [Concomitant]
     Active Substance: OMEPRAZOLE
     Indication: PROPHYLAXIS
     Dosage: 40 MG, QD
     Route: 042
     Dates: start: 20151205, end: 20151219
  87. TALCID [Concomitant]
     Active Substance: HYDROTALCITE
     Indication: ANTACID THERAPY
     Dosage: 1000 MG, QD
     Route: 048
     Dates: start: 20150909
  88. SUCRALFATE. [Concomitant]
     Active Substance: SUCRALFATE
     Indication: ANTACID THERAPY
     Dosage: 750 MG, QD
     Route: 048
     Dates: start: 20150901, end: 20150901
  89. CALCIUM GLUCONATE. [Concomitant]
     Active Substance: CALCIUM GLUCONATE
     Indication: ELECTROLYTE IMBALANCE
     Dosage: 3 G, QD
     Route: 042
     Dates: start: 20150902, end: 20150903
  90. IMIPENEM/CILASTATINE [Concomitant]
     Active Substance: CILASTATIN SODIUM\IMIPENEM
     Indication: INFECTION PROPHYLAXIS
     Dosage: 500 MG, Q8H
     Route: 042
     Dates: start: 20150901, end: 20150908
  91. IMIPENEM/CILASTATINE [Concomitant]
     Active Substance: CILASTATIN SODIUM\IMIPENEM
     Dosage: 500 MG, Q8H
     Route: 042
     Dates: start: 20151014, end: 20151020
  92. INSULIN [Concomitant]
     Active Substance: INSULIN NOS
     Indication: ELECTROLYTE IMBALANCE
     Dosage: 6 IU, QD
     Route: 042
     Dates: start: 20151014, end: 20151014
  93. INSULIN [Concomitant]
     Active Substance: INSULIN NOS
     Dosage: 6 IU, QD
     Route: 042
     Dates: start: 20151205, end: 20151205
  94. CEFOPERAZONE W/SULBACTAM SODIUM [Concomitant]
     Indication: INFECTION PROPHYLAXIS
     Dosage: 2000 MG, Q8H
     Route: 042
     Dates: start: 20151020
  95. LOSEC                                   /CAN/ [Concomitant]
     Indication: ANTACID THERAPY
     Dosage: 40 MG, QD
     Route: 042
     Dates: start: 20151104
  96. LOSEC                                   /CAN/ [Concomitant]
     Indication: PROPHYLAXIS
  97. GLUCOSE [Concomitant]
     Active Substance: DEXTROSE
     Indication: ELECTROLYTE SUBSTITUTION THERAPY
     Dosage: 2000 ML, QD
     Route: 042
     Dates: start: 20151204, end: 20151205
  98. ENEMA (SODIUM PHOSPHATE, DIBASIC\SODIUM PHOSPHATE, MONOBASIC) [Concomitant]
     Active Substance: SODIUM PHOSPHATE, DIBASIC\SODIUM PHOSPHATE, MONOBASIC
     Dosage: 60 ML, PRN
     Route: 054
     Dates: start: 20151218, end: 20151218
  99. ENEMA (SODIUM PHOSPHATE, DIBASIC\SODIUM PHOSPHATE, MONOBASIC) [Concomitant]
     Active Substance: SODIUM PHOSPHATE, DIBASIC\SODIUM PHOSPHATE, MONOBASIC
     Dosage: 40 ML, PRN
     Route: 054
     Dates: start: 20151209, end: 20151210
  100. ENEMA (SODIUM PHOSPHATE, DIBASIC\SODIUM PHOSPHATE, MONOBASIC) [Concomitant]
     Active Substance: SODIUM PHOSPHATE, DIBASIC\SODIUM PHOSPHATE, MONOBASIC
     Dosage: 60 ML, PRN
     Route: 054
     Dates: start: 20151207, end: 20151207
  101. PREDNISONE. [Suspect]
     Active Substance: PREDNISONE
     Dosage: 10 MG, QD
     Route: 065
     Dates: start: 20160112
  102. MAGNESIN//MAGNESIUM SULFATE [Concomitant]
     Dosage: 4.8 ML, QD
     Route: 042
     Dates: start: 20151106, end: 20151106
  103. AARAM//ALPRAZOLAM [Concomitant]
     Indication: SEDATIVE THERAPY
     Dosage: 0.4 MG, QD
     Route: 048
     Dates: start: 20150902, end: 20150908
  104. SULFAMETHOXAZOLE [Concomitant]
     Active Substance: SULFAMETHOXAZOLE
     Indication: INFECTION PROPHYLAXIS
     Dosage: 240 MG, QD
     Route: 048
     Dates: start: 20150909
  105. FUROSEMIDE. [Concomitant]
     Active Substance: FUROSEMIDE
     Dosage: 40 MG, QD
     Route: 042
     Dates: start: 20151107, end: 20151107
  106. FUROSEMIDE. [Concomitant]
     Active Substance: FUROSEMIDE
     Dosage: 20 MG, BID
     Route: 042
     Dates: start: 20151205, end: 20151206
  107. FUROSEMIDE. [Concomitant]
     Active Substance: FUROSEMIDE
     Dosage: 20 MG, QD
     Route: 042
     Dates: start: 20151215, end: 20151216
  108. GANCICLOVIR. [Concomitant]
     Active Substance: GANCICLOVIR
     Indication: ANTIVIRAL TREATMENT
     Dosage: 500 MG, PRN
     Route: 048
     Dates: start: 20151219
  109. DIAZEPAM. [Concomitant]
     Active Substance: DIAZEPAM
     Dosage: 5 MG, QD
     Route: 048
     Dates: start: 20151204, end: 20151204
  110. CALCIUM GLUCONATE. [Concomitant]
     Active Substance: CALCIUM GLUCONATE
     Dosage: 2 G, QD
     Route: 042
     Dates: start: 20151216, end: 20151218
  111. AMPHOTERICIN B, LIPOSOME [Concomitant]
     Active Substance: AMPHOTERICIN B
     Indication: INFECTION PROPHYLAXIS
     Dosage: 10 MG, QD
     Route: 042
     Dates: start: 20151015
  112. TIGECYCLINE. [Concomitant]
     Active Substance: TIGECYCLINE
     Indication: INFECTION PROPHYLAXIS
     Dosage: 100 MG, Q12H
     Route: 042
     Dates: start: 20151019
  113. POTASSIUM CHLORIDE. [Concomitant]
     Active Substance: POTASSIUM CHLORIDE
     Dosage: 12 ML, QD
     Route: 042
     Dates: start: 20151103, end: 20151104
  114. POTASSIUM CHLORIDE. [Concomitant]
     Active Substance: POTASSIUM CHLORIDE
     Dosage: 18 ML, QD
     Route: 042
     Dates: start: 20151106, end: 20151106
  115. ALPROSTADIL. [Concomitant]
     Active Substance: ALPROSTADIL
     Indication: VASODILATATION
     Dosage: 20 UG, QD
     Route: 042
     Dates: start: 20151110
  116. ALPROSTADIL. [Concomitant]
     Active Substance: ALPROSTADIL
     Dosage: 20 UG, QD
     Route: 042
     Dates: start: 20151208, end: 20151219
  117. VITA K1 [Concomitant]
     Indication: HAEMORRHAGE PROPHYLAXIS
     Dosage: 30 MG, QD
     Route: 042
     Dates: start: 20151107
  118. MACROGOL 4000 [Concomitant]
     Active Substance: POLYETHYLENE GLYCOL 4000
     Dosage: 10 G, BID
     Route: 048
     Dates: start: 20151209, end: 20151215
  119. MOSAPRIDE CITRATE [Concomitant]
     Active Substance: MOSAPRIDE CITRATE
     Indication: ABDOMINAL DISTENSION
     Dosage: 5 MG, PRN
     Route: 048
     Dates: start: 20151208, end: 20151208
  120. VITAMIN B4 [Concomitant]
     Indication: WHITE BLOOD CELL DISORDER
     Dosage: 20 MG, TID
     Route: 048
     Dates: start: 20151208, end: 20151216
  121. TACROLIMUS. [Suspect]
     Active Substance: TACROLIMUS
     Dosage: 4 MG, QD
     Route: 065
     Dates: start: 20151222, end: 20151228
  122. SODIUM CHLORIDE. [Concomitant]
     Active Substance: SODIUM CHLORIDE
     Indication: ELECTROLYTE IMBALANCE
     Dosage: 500 ML, PRN
     Route: 042
     Dates: start: 20151204, end: 20151204
  123. MANNITOL. [Concomitant]
     Active Substance: MANNITOL
     Dosage: 125 ML, QD
     Route: 042
     Dates: start: 20151014, end: 20151014
  124. MAGNESIN//MAGNESIUM SULFATE [Concomitant]
     Indication: ELECTROLYTE IMBALANCE
     Dosage: 1.6 ML, QD
     Route: 042
     Dates: start: 20151014, end: 20151014
  125. SODIUM BICARBONATE. [Concomitant]
     Active Substance: SODIUM BICARBONATE
     Indication: ANTACID THERAPY
     Dosage: 1000 MG, BID
     Route: 048
     Dates: start: 20150909
  126. AMIKACIN [Concomitant]
     Active Substance: AMIKACIN
     Dosage: 400 MG, PRN
     Route: 042
     Dates: start: 20151204, end: 20151204
  127. PMS-PROMETHAZINE [Concomitant]
     Indication: SEDATIVE THERAPY
     Dosage: 2 DF, TID
     Route: 048
     Dates: start: 20150902, end: 20150908
  128. PMS-PROMETHAZINE [Concomitant]
     Dosage: 2 DF, TID
     Route: 048
     Dates: start: 20151205, end: 20151219
  129. DILTIAZEM HYDROCHLORIDE. [Concomitant]
     Active Substance: DILTIAZEM HYDROCHLORIDE
     Dosage: 30 MG, BID
     Route: 048
     Dates: start: 20151104
  130. FUROSEMIDE. [Concomitant]
     Active Substance: FUROSEMIDE
     Dosage: 40 MG, QD
     Route: 042
     Dates: start: 20151211, end: 20151215
  131. TALCID [Concomitant]
     Active Substance: HYDROTALCITE
     Dosage: 1000 MG, QD
     Route: 048
     Dates: start: 20151205
  132. TEICOPLANIN [Concomitant]
     Active Substance: TEICOPLANIN
     Indication: INFECTION PROPHYLAXIS
     Dosage: 200 MG, QD
     Route: 042
     Dates: start: 20150902, end: 20150908
  133. HEPARIN SODIUM. [Concomitant]
     Active Substance: HEPARIN SODIUM
     Indication: THROMBOSIS PROPHYLAXIS
     Dosage: 12500 IU, QD
     Route: 042
     Dates: start: 20150903, end: 20150908
  134. CASPOFUNGIN ACETATE. [Concomitant]
     Active Substance: CASPOFUNGIN ACETATE
     Dosage: 50 MG, QD
     Route: 042
     Dates: start: 20151014, end: 20151014
  135. CALCIUM GLUCONATE. [Concomitant]
     Active Substance: CALCIUM GLUCONATE
     Indication: PROPHYLAXIS
     Dosage: 3 G, QD
     Route: 042
     Dates: start: 20151104, end: 20151105
  136. IMIPENEM/CILASTATINE [Concomitant]
     Active Substance: CILASTATIN SODIUM\IMIPENEM
     Dosage: 500 MG, PRN
     Route: 042
     Dates: start: 20151204, end: 20151204
  137. HEPATITIS B IMMUNE GLOBULIN [Concomitant]
     Active Substance: HUMAN HEPATITIS B VIRUS IMMUNE GLOBULIN
     Indication: ANTIVIRAL PROPHYLAXIS
     Dosage: 400 IU, QD
     Route: 030
     Dates: start: 20150903, end: 20150903
  138. HEPATITIS B IMMUNE GLOBULIN [Concomitant]
     Active Substance: HUMAN HEPATITIS B VIRUS IMMUNE GLOBULIN
     Indication: INFECTION PROPHYLAXIS
     Dosage: 400 IU, QD
     Route: 030
     Dates: start: 20151014, end: 20151020
  139. INSULIN [Concomitant]
     Active Substance: INSULIN NOS
     Indication: PROPHYLAXIS
     Dosage: 12 IU, QD
     Route: 042
     Dates: start: 20150901, end: 20150902
  140. POTASSIUM CHLORIDE. [Concomitant]
     Active Substance: POTASSIUM CHLORIDE
     Indication: ELECTROLYTE IMBALANCE
     Dosage: 6 ML, QD
     Route: 042
     Dates: start: 20151014, end: 20151014
  141. CLONIDINE. [Concomitant]
     Active Substance: CLONIDINE
     Indication: BLOOD PRESSURE INCREASED
     Dosage: 75 UG, QD
     Route: 048
     Dates: start: 20151113, end: 20151113
  142. MACROGOL 4000 [Concomitant]
     Active Substance: POLYETHYLENE GLYCOL 4000
     Indication: CONSTIPATION PROPHYLAXIS
     Dosage: 10 G, TID
     Route: 048
     Dates: start: 20150909
  143. ENEMA (SODIUM PHOSPHATE, DIBASIC\SODIUM PHOSPHATE, MONOBASIC) [Concomitant]
     Active Substance: SODIUM PHOSPHATE, DIBASIC\SODIUM PHOSPHATE, MONOBASIC
     Dosage: 60 ML, PRN
     Route: 054
     Dates: start: 20151212, end: 20151212
  144. MYFORTIC [Suspect]
     Active Substance: MYCOPHENOLATE SODIUM
     Indication: RENAL TRANSPLANT
     Dosage: 2160 MG, QD
     Route: 065
     Dates: start: 20151205, end: 20151209
  145. METHYLPREDNISOLONE. [Suspect]
     Active Substance: METHYLPREDNISOLONE
     Dosage: 40 MG, QD
     Route: 065
     Dates: start: 20151208, end: 20151219
  146. SODIUM CHLORIDE. [Concomitant]
     Active Substance: SODIUM CHLORIDE
     Indication: PROPHYLAXIS
     Dosage: 12 ML, QD
     Route: 042
     Dates: start: 20150901, end: 20150902
  147. SODIUM BICARBONATE. [Concomitant]
     Active Substance: SODIUM BICARBONATE
     Indication: PROPHYLAXIS
     Dosage: 250 ML, QD
     Route: 042
     Dates: start: 20150901, end: 20150902
  148. SODIUM BICARBONATE. [Concomitant]
     Active Substance: SODIUM BICARBONATE
     Indication: ELECTROLYTE IMBALANCE
     Dosage: 125 ML, QD
     Route: 042
     Dates: start: 20151014, end: 20151014
  149. AARAM//ALPRAZOLAM [Concomitant]
     Dosage: 0.4 MG, QN
     Route: 048
     Dates: start: 20151104
  150. AMIKACIN [Concomitant]
     Active Substance: AMIKACIN
     Dosage: 400 MG, SOS
     Route: 042
     Dates: start: 20151103, end: 20151103
  151. FUROSEMIDE. [Concomitant]
     Active Substance: FUROSEMIDE
     Dosage: 20 MG, QD
     Route: 042
     Dates: start: 20151217, end: 20151218
  152. METOCLOPRAMIDE. [Concomitant]
     Active Substance: METOCLOPRAMIDE
     Dosage: 10 MG, QD
     Route: 030
     Dates: start: 20151205, end: 20151206
  153. OMEPRAZOLE. [Concomitant]
     Active Substance: OMEPRAZOLE
     Indication: ANTACID THERAPY
     Dosage: 40 MG, QD
     Route: 042
     Dates: start: 20150902, end: 20150908
  154. HEPARIN SODIUM. [Concomitant]
     Active Substance: HEPARIN SODIUM
     Indication: RENAL DISORDER
     Dosage: 12500 IU, W2D2
     Route: 042
     Dates: start: 20151105
  155. CASPOFUNGIN ACETATE. [Concomitant]
     Active Substance: CASPOFUNGIN ACETATE
     Dosage: 50 MG, PRN
     Route: 042
     Dates: start: 20151204, end: 20151204
  156. LOSEC                                   /CAN/ [Concomitant]
     Indication: PROPHYLAXIS
  157. ALIN//DEXAMETHASONE [Concomitant]
     Indication: PROPHYLAXIS
     Dosage: 10 MG, QD
     Route: 042
     Dates: start: 20151014, end: 20151014
  158. ENOXAPARIN SODIUM. [Concomitant]
     Active Substance: ENOXAPARIN SODIUM
     Indication: HAEMODIALYSIS
     Dosage: 4000 IU, QD
     Route: 042
     Dates: start: 20151210, end: 20151210
  159. LEUCOGEN [Concomitant]
     Active Substance: LEUCOGEN
     Indication: LEUKOCYTOSIS
     Dosage: 40 MG, TID
     Route: 048
     Dates: start: 20151208, end: 20151216
  160. MUKOPOLYSACKARIDPOLYSULFAT [Concomitant]
     Indication: PROPHYLAXIS
     Dosage: 14 G, PRN
     Route: 065
     Dates: start: 20151214, end: 20151214
  161. CRAVIT [Concomitant]
     Active Substance: LEVOFLOXACIN
     Indication: INFECTION
     Dosage: 500 MG, QD
     Route: 048
     Dates: start: 20161213
  162. ENEMA (SODIUM PHOSPHATE, DIBASIC\SODIUM PHOSPHATE, MONOBASIC) [Concomitant]
     Active Substance: SODIUM PHOSPHATE, DIBASIC\SODIUM PHOSPHATE, MONOBASIC
     Dosage: 20 ML, PRN
     Route: 054
     Dates: start: 20151206, end: 20151206

REACTIONS (15)
  - Blood glucose increased [Unknown]
  - Abdominal distension [Recovering/Resolving]
  - Effusion [Recovering/Resolving]
  - Blood urea increased [Recovering/Resolving]
  - Bilirubin conjugated increased [Unknown]
  - Blood creatinine decreased [Recovering/Resolving]
  - Hepatic cyst [Recovering/Resolving]
  - Constipation [Recovering/Resolving]
  - Renal cyst [Recovering/Resolving]
  - Epididymal disorder [Recovering/Resolving]
  - Lymphocyte count decreased [Unknown]
  - Abdominal pain [Recovering/Resolving]
  - Incision site pain [Recovering/Resolving]
  - Procedural pain [Recovering/Resolving]
  - Blood bilirubin increased [Unknown]

NARRATIVE: CASE EVENT DATE: 20151205
